FAERS Safety Report 15633102 (Version 1)
Quarter: 2018Q4

REPORT INFORMATION
  Report Type: Spontaneous
  Country: US (occurrence: US)
  Receive Date: 20181119
  Receipt Date: 20181119
  Transmission Date: 20190205
  Serious: Yes (Other)
  Sender: FDA-Public Use
  Company Number: US-BAUSCH-BL-2018-028368

PATIENT
  Age: 81 Year
  Sex: Female
  Weight: 82.63 kg

DRUGS (1)
  1. SOOTHE XP [Suspect]
     Active Substance: LIGHT MINERAL OIL\MINERAL OIL
     Indication: DRY EYE
     Dosage: FOLLOWED THE RECOMMENDED DOSAGE REGIMEN IN THE LABEL
     Route: 047

REACTIONS (1)
  - Hypersensitivity [Recovered/Resolved]
